FAERS Safety Report 14600928 (Version 1)
Quarter: 2018Q1

REPORT INFORMATION
  Report Type: Spontaneous
  Country: US (occurrence: US)
  Receive Date: 20180304
  Receipt Date: 20180304
  Transmission Date: 20180509
  Serious: No
  Sender: FDA-Public Use
  Company Number: None

PATIENT
  Age: 75 Year
  Sex: Male
  Weight: 116.7 kg

DRUGS (1)
  1. CYCLOBENZAPRINE. [Suspect]
     Active Substance: CYCLOBENZAPRINE
     Indication: MUSCLE SPASMS
     Dates: start: 20171019, end: 20171208

REACTIONS (8)
  - Oropharyngeal pain [None]
  - Eye swelling [None]
  - Sinus congestion [None]
  - Pharyngeal oedema [None]
  - Nasal congestion [None]
  - Tinnitus [None]
  - Angioedema [None]
  - Eye discharge [None]

NARRATIVE: CASE EVENT DATE: 20171203
